APPROVED DRUG PRODUCT: NEPHROFLOW
Active Ingredient: IODOHIPPURATE SODIUM I-123
Strength: 1mCi/ML
Dosage Form/Route: INJECTABLE;INJECTION
Application: N018289 | Product #001
Applicant: GE HEALTHCARE
Approved: Dec 28, 1984 | RLD: No | RS: No | Type: DISCN